FAERS Safety Report 21391719 (Version 1)
Quarter: 2022Q3

REPORT INFORMATION
  Report Type: Spontaneous
  Country: KR (occurrence: KR)
  Receive Date: 20220929
  Receipt Date: 20220929
  Transmission Date: 20221026
  Serious: Yes (Death, Other)
  Sender: FDA-Public Use
  Company Number: KR-PFIZER INC-PV202200071975

PATIENT
  Age: 80 Year
  Sex: Male

DRUGS (1)
  1. VYNDAMAX [Suspect]
     Active Substance: TAFAMIDIS
     Dosage: 61 MG, 1X/DAY
     Route: 048
     Dates: end: 20220926

REACTIONS (2)
  - Death [Fatal]
  - Cardiac failure [Unknown]

NARRATIVE: CASE EVENT DATE: 20220926
